FAERS Safety Report 6627041-8 (Version None)
Quarter: 2010Q1

REPORT INFORMATION
  Report Type: 
  Country: None (occurrence: None)
  Receive Date: 20100311
  Receipt Date: 20100104
  Transmission Date: 20100710
  Serious: No
  Sender: FDA-Public Use
  Company Number: US-KINGPHARMUSA00001-K201000006

PATIENT
  Sex: Female
  Weight: 147.39 kg

DRUGS (12)
  1. EMBEDA [Suspect]
     Indication: BACK PAIN
     Dosage: 30 MG, EVERY 12 HOURS
     Route: 048
     Dates: start: 20091231
  2. NEURONTIN [Concomitant]
     Indication: BACK PAIN
     Dosage: UNK
  3. CRESTOR [Concomitant]
     Indication: BLOOD CHOLESTEROL INCREASED
     Dosage: 5 MG, QD
  4. REQUIP [Concomitant]
     Indication: RESTLESS LEGS SYNDROME
     Dosage: UNK
  5. FLEXERIL [Concomitant]
     Indication: BACK PAIN
     Dosage: 10 MG, BID
  6. HYDROCHLOROTHIAZIDE [Concomitant]
     Indication: HYPERTENSION
     Dosage: ^40/25^ MG QD
  7. PROTONIX [Concomitant]
     Indication: ULCER
     Dosage: 40 MG, QAM
  8. VITAMIN D [Concomitant]
     Dosage: UNK
  9. MOBIC [Concomitant]
     Indication: ARTHRITIS
     Dosage: 7.5 MG, BID
  10. LASIX [Concomitant]
     Indication: SWELLING
     Dosage: UNK
  11. COMPAZINE [Concomitant]
     Indication: ABDOMINAL DISCOMFORT
     Dosage: UNK
  12. ADVAIR DISKUS 100/50 [Concomitant]
     Indication: ASTHMA
     Dosage: UNK

REACTIONS (1)
  - MADAROSIS [None]
